FAERS Safety Report 14480969 (Version 1)
Quarter: 2018Q1

REPORT INFORMATION
  Report Type: Spontaneous
  Country: US (occurrence: US)
  Receive Date: 20180201
  Receipt Date: 20180201
  Transmission Date: 20180509
  Serious: No
  Sender: FDA-Public Use
  Company Number: None

PATIENT
  Age: 29 Year
  Sex: Female
  Weight: 47.25 kg

DRUGS (1)
  1. DEXAMETHASONE. [Suspect]
     Active Substance: DEXAMETHASONE
     Indication: INFLUENZA
     Dosage: ?          QUANTITY:1 TABLET(S);OTHER FREQUENCY:ONE SINGLE DOSE;?
     Route: 048
     Dates: start: 20171228, end: 20171228

REACTIONS (3)
  - Mood swings [None]
  - Dysmenorrhoea [None]
  - Menstrual disorder [None]

NARRATIVE: CASE EVENT DATE: 20171230
